FAERS Safety Report 15476169 (Version 1)
Quarter: 2018Q4

REPORT INFORMATION
  Report Type: Spontaneous
  Country: FR (occurrence: FR)
  Receive Date: 20181009
  Receipt Date: 20181009
  Transmission Date: 20190205
  Serious: Yes (Hospitalization, Other)
  Sender: FDA-Public Use
  Company Number: PHHY2018FR117795

PATIENT
  Age: 39 Year
  Sex: Male

DRUGS (2)
  1. BETADINE [Suspect]
     Active Substance: POVIDONE-IODINE
     Indication: SKIN TEST
     Dosage: UNK
     Route: 003
  2. CARBAMAZEPINE. [Suspect]
     Active Substance: CARBAMAZEPINE
     Indication: SKIN TEST
     Dosage: UNK
     Route: 003

REACTIONS (1)
  - Drug eruption [Unknown]
